FAERS Safety Report 15833172 (Version 1)
Quarter: 2019Q1

REPORT INFORMATION
  Report Type: Spontaneous
  Country: IT (occurrence: IT)
  Receive Date: 20190116
  Receipt Date: 20190116
  Transmission Date: 20190417
  Serious: Yes (Hospitalization)
  Sender: FDA-Public Use
  Company Number: IT-TEVA-2019-IT-998787

PATIENT
  Age: 70 Year
  Sex: Female

DRUGS (7)
  1. LANSOPRAZOLO EG [Concomitant]
  2. VALSARTAN. [Suspect]
     Active Substance: VALSARTAN
     Indication: HYPERTENSION
     Route: 065
  3. TOTALIP [Concomitant]
     Active Substance: ATORVASTATIN
  4. CARDIOASPIRIN [Concomitant]
     Active Substance: ASPIRIN
  5. METOPROLOLO EG [Concomitant]
  6. CIPRALEX [Concomitant]
     Active Substance: ESCITALOPRAM OXALATE
  7. EUCREAS [Concomitant]
     Active Substance: METFORMIN HYDROCHLORIDE\VILDAGLIPTIN

REACTIONS (2)
  - Hypersensitivity [Recovered/Resolved]
  - Acquired macroglossia [Recovered/Resolved]

NARRATIVE: CASE EVENT DATE: 20181214
